FAERS Safety Report 6927264 (Version 6)
Quarter: 2013Q2

REPORT INFORMATION
  Report Type: Spontaneous
  Country: AU (occurrence: AU)
  Receive Date: 20090304
  Receipt Date: 20130605
  Transmission Date: 20140414
  Serious: Yes (Other)
  Sender: FDA-Public Use
  Company Number: AU-PFIZER INC-2009155753

PATIENT
  Age: 55 Year
  Sex: Male

DRUGS (3)
  1. LIGNOCAINE [Suspect]
     Indication: NERVE BLOCK
     Dosage: UNK
     Dates: start: 20081031
  2. LYRICA [Suspect]
     Dosage: UNK
  3. CELESTONE [Suspect]
     Indication: NERVE BLOCK
     Dosage: UNK
     Dates: start: 20081031

REACTIONS (18)
  - Drug administration error [Unknown]
  - Disorientation [Unknown]
  - Hearing impaired [Not Recovered/Not Resolved]
  - Visual acuity reduced [Not Recovered/Not Resolved]
  - Brain stem stroke [Unknown]
  - Confusional state [Unknown]
  - Speech disorder [Not Recovered/Not Resolved]
  - Gait disturbance [Unknown]
  - Injection site pain [Unknown]
  - Chills [Not Recovered/Not Resolved]
  - Pain [Unknown]
  - Malaise [Unknown]
  - Nervousness [Unknown]
  - Tremor [Not Recovered/Not Resolved]
  - Insomnia [Unknown]
  - Dysphemia [Not Recovered/Not Resolved]
  - Tinnitus [Not Recovered/Not Resolved]
  - Anxiety [Unknown]
